FAERS Safety Report 4860907-8 (Version None)
Quarter: 2005Q4

REPORT INFORMATION
  Report Type: 
  Country: None (occurrence: None)
  Receive Date: 20051220
  Receipt Date: 20051212
  Transmission Date: 20060501
  Serious: Yes (Hospitalization)
  Sender: FDA-Public Use
  Company Number: PHHO2005RU19290

PATIENT
  Age: 49 Year
  Weight: 96 kg

DRUGS (2)
  1. RAD001 VS PLACEBO [Suspect]
     Indication: CHEMOTHERAPY MULTIPLE AGENTS SYSTEMIC
     Dosage: DOUBLE-BLIND
     Route: 048
     Dates: start: 20050921, end: 20051126
  2. FEMARA [Suspect]
     Indication: BREAST CANCER
     Dates: start: 20050921

REACTIONS (4)
  - DYSPNOEA [None]
  - INTERSTITIAL LUNG DISEASE [None]
  - PNEUMONIA [None]
  - PYREXIA [None]
